FAERS Safety Report 11593276 (Version 1)
Quarter: 2015Q4

REPORT INFORMATION
  Report Type: Spontaneous
  Country: FR (occurrence: FR)
  Receive Date: 20151005
  Receipt Date: 20151005
  Transmission Date: 20160304
  Serious: Yes (Hospitalization)
  Sender: FDA-Public Use
  Company Number: FR-PFIZER INC-2015326995

PATIENT
  Age: 82 Year
  Sex: Female

DRUGS (6)
  1. RAMIPRIL. [Suspect]
     Active Substance: RAMIPRIL
     Dosage: UNK
     Route: 048
     Dates: end: 20150909
  2. AMIODARONE [Concomitant]
     Active Substance: AMIODARONE
  3. CRESTOR [Concomitant]
     Active Substance: ROSUVASTATIN CALCIUM
  4. ALDACTAZINE [Suspect]
     Active Substance: ALTHIAZIDE\SPIRONOLACTONE
     Dosage: UNK
     Route: 048
     Dates: end: 20150909
  5. GLIBENCLAMIDE [Concomitant]
     Active Substance: GLYBURIDE
  6. PREVISCAN /00789001/ [Suspect]
     Active Substance: FLUINDIONE
     Dosage: UNK
     Dates: end: 20150908

REACTIONS (2)
  - International normalised ratio increased [Recovered/Resolved]
  - Hyperkalaemia [Recovered/Resolved]

NARRATIVE: CASE EVENT DATE: 20150908
